FAERS Safety Report 6569238-1 (Version None)
Quarter: 2010Q1

REPORT INFORMATION
  Report Type: 
  Country: None (occurrence: None)
  Receive Date: 20100201
  Receipt Date: 20100201
  Transmission Date: 20100710
  Serious: Yes (Other)
  Sender: FDA-Public Use
  Company Number: None

PATIENT
  Age: 66 Year
  Sex: Female
  Weight: 89.8122 kg

DRUGS (2)
  1. LOVENOX [Suspect]
     Indication: HIP ARTHROPLASTY
     Dates: start: 20021122, end: 20021208
  2. LOVENOX [Suspect]
     Indication: HIP ARTHROPLASTY
     Dates: start: 20090920, end: 20090926

REACTIONS (1)
  - RASH [None]
